FAERS Safety Report 7400215-4 (Version None)
Quarter: 2011Q2

REPORT INFORMATION
  Report Type: 
  Country: None (occurrence: None)
  Receive Date: 20110407
  Receipt Date: 20110325
  Transmission Date: 20111010
  Serious: Yes (Hospitalization)
  Sender: FDA-Public Use
  Company Number: US-ACTELION-A-NJ2010-40562

PATIENT

DRUGS (2)
  1. TRACLEER [Suspect]
     Indication: PULMONARY HYPERTENSION
     Dosage: 62.5 MG, BID
     Route: 048
     Dates: start: 20091001
  2. REVATIO [Concomitant]

REACTIONS (4)
  - ANXIETY [None]
  - PALPITATIONS [None]
  - RESTLESSNESS [None]
  - BLOOD POTASSIUM DECREASED [None]
